FAERS Safety Report 25778901 (Version 1)
Quarter: 2025Q3

REPORT INFORMATION
  Report Type: Spontaneous
  Country: US (occurrence: US)
  Receive Date: 20250909
  Receipt Date: 20250909
  Transmission Date: 20251021
  Serious: Yes (Life-Threatening, Hospitalization)
  Sender: DR REDDYS
  Company Number: US-MLMSERVICE-20250828-PI627584-00108-1

PATIENT
  Age: 65 Year
  Sex: Female

DRUGS (5)
  1. CLOZAPINE [Suspect]
     Active Substance: CLOZAPINE
     Indication: Schizophrenia
     Dosage: 200 MG IN THE MORNING AND 500 MG AT NIGHT; FOR MORE THAN 20 YEARS
  2. ZIPRASIDONE [Concomitant]
     Active Substance: ZIPRASIDONE
     Indication: Psychotic symptom
  3. ZIPRASIDONE [Concomitant]
     Active Substance: ZIPRASIDONE
     Indication: Condition aggravated
  4. OLANZAPINE [Concomitant]
     Active Substance: OLANZAPINE
     Indication: Psychotic symptom
  5. OLANZAPINE [Concomitant]
     Active Substance: OLANZAPINE
     Indication: Condition aggravated

REACTIONS (5)
  - Gastrointestinal hypomotility [Recovering/Resolving]
  - Hypotension [Unknown]
  - Antipsychotic drug level above therapeutic [Unknown]
  - Hypokalaemia [Unknown]
  - Ileus paralytic [Recovering/Resolving]
